FAERS Safety Report 4895553-3 (Version None)
Quarter: 2006Q1

REPORT INFORMATION
  Report Type: 
  Country: None (occurrence: None)
  Receive Date: 20060130
  Receipt Date: 20060126
  Transmission Date: 20060701
  Serious: Yes (Life-Threatening)
  Sender: FDA-Public Use
  Company Number: PHBS2006JP01438

PATIENT
  Age: 66 Year
  Sex: Male

DRUGS (10)
  1. DIOVAN [Suspect]
     Indication: HYPERTENSION
     Dosage: 80 MG/DAY
     Route: 048
     Dates: start: 20060113
  2. NORVASC [Suspect]
     Dosage: 10 MG/DAY
     Route: 048
     Dates: start: 20060113
  3. KERLONG [Suspect]
     Dosage: 0.6 MG/DAY
     Route: 048
     Dates: start: 20060117
  4. MIDAZOLAM [Suspect]
     Dosage: UNK, UNK
     Route: 042
     Dates: start: 20060124
  5. ACTOS [Concomitant]
     Dosage: 30 MG, UNK
     Route: 048
     Dates: start: 20060113
  6. AMARYL [Concomitant]
     Dosage: 1 MG, UNK
     Route: 048
     Dates: start: 20060113
  7. BASEN [Concomitant]
     Dosage: 0.6 MG, UNK
     Route: 048
     Dates: start: 20060113
  8. MUCOSTA [Concomitant]
     Dosage: 3 DF, UNK
     Route: 048
     Dates: start: 20060113
  9. GASTER D [Concomitant]
     Dosage: 20 MG, UNK
     Route: 048
     Dates: start: 20060113
  10. VITAMEDIN [Concomitant]
     Dosage: 2 DF, UNK
     Route: 048
     Dates: start: 20060113

REACTIONS (8)
  - CARDIAC ARREST [None]
  - DEPRESSED LEVEL OF CONSCIOUSNESS [None]
  - DRUG INEFFECTIVE [None]
  - NODAL RHYTHM [None]
  - OVERDOSE [None]
  - RENAL FAILURE ACUTE [None]
  - SHOCK [None]
  - SUICIDE ATTEMPT [None]
